FAERS Safety Report 6160568-4 (Version None)
Quarter: 2009Q2

REPORT INFORMATION
  Report Type: 
  Country: None (occurrence: None)
  Receive Date: 20090416
  Receipt Date: 20090401
  Transmission Date: 20091009
  Serious: Yes (Hospitalization)
  Sender: FDA-Public Use
  Company Number: 2009EU001461

PATIENT
  Age: 25 Year
  Sex: Female

DRUGS (1)
  1. PROTOPIC [Suspect]
     Indication: DERMATITIS ATOPIC
     Dosage: 0.1%, UNKNOWN/D, TOPICAL; 0.03%, UNKNOWN/D, TOPICAL
     Route: 061

REACTIONS (1)
  - ORAL HERPES [None]
